FAERS Safety Report 14738145 (Version 2)
Quarter: 2019Q1

REPORT INFORMATION
  Report Type: Spontaneous
  Country: US (occurrence: US)
  Receive Date: 20180409
  Receipt Date: 20190327
  Transmission Date: 20190417
  Serious: No
  Sender: FDA-Public Use
  Company Number: US-MYLANLABS-2018M1017123

PATIENT
  Age: 49 Year
  Sex: Female
  Weight: 104 kg

DRUGS (1)
  1. FENTANYL TRANSDERMAL SYSTEM [Suspect]
     Active Substance: FENTANYL
     Indication: SARCOIDOSIS
     Dosage: UNK ?G, UNK
     Route: 062
     Dates: start: 20180309

REACTIONS (6)
  - Skin burning sensation [Not Recovered/Not Resolved]
  - Skin exfoliation [Not Recovered/Not Resolved]
  - Product adhesion issue [Recovering/Resolving]
  - Discomfort [Recovering/Resolving]
  - Application site vesicles [Not Recovered/Not Resolved]
  - Drug ineffective [Recovering/Resolving]

NARRATIVE: CASE EVENT DATE: 20180309
